FAERS Safety Report 11250528 (Version 1)
Quarter: 2015Q3

REPORT INFORMATION
  Report Type: Spontaneous
  Country: GB (occurrence: GB)
  Receive Date: 20150708
  Receipt Date: 20150708
  Transmission Date: 20151125
  Serious: Yes (Disabling)
  Sender: FDA-Public Use
  Company Number: GB-TEVA-575778ACC

PATIENT
  Age: 53 Year
  Sex: Female
  Weight: 102 kg

DRUGS (9)
  1. AZOPT [Concomitant]
     Active Substance: BRINZOLAMIDE
     Dosage: 2 GTT DAILY; TO RIGHT EYE.
     Dates: start: 20141210
  2. LATANOPROST. [Concomitant]
     Active Substance: LATANOPROST
     Dosage: 1 GTT DAILY; TO RIGHT EYE.
     Dates: start: 20141210
  3. EXENATIDE [Concomitant]
     Active Substance: EXENATIDE
     Dosage: USE AS DIRECTED.
     Dates: start: 20141210
  4. METFORMIN [Concomitant]
     Active Substance: METFORMIN HYDROCHLORIDE
     Dosage: 2 DOSAGE FORMS DAILY; WITH EVENING MEAL.
     Dates: start: 20141210
  5. TRAZODONE [Suspect]
     Active Substance: TRAZODONE HYDROCHLORIDE
  6. MIRTAZAPINE. [Concomitant]
     Active Substance: MIRTAZAPINE
     Dosage: 1-2 TO BE TAKEN EACH NIGHT.
     Dates: start: 20150512, end: 20150609
  7. EVOREL [Concomitant]
     Dosage: APPLY TWICE WEEKLY
     Dates: start: 20141210
  8. GLICLAZIDE [Concomitant]
     Active Substance: GLICLAZIDE
     Dosage: 1 IN THE MORNING, TWO IN THE EVENING.
     Dates: start: 20141210
  9. CITALOPRAM [Concomitant]
     Active Substance: CITALOPRAM HYDROBROMIDE
     Dosage: 1 DOSAGE FORMS DAILY;
     Dates: start: 20150420, end: 20150502

REACTIONS (1)
  - Sudden hearing loss [Recovered/Resolved]

NARRATIVE: CASE EVENT DATE: 20150531
